FAERS Safety Report 12957230 (Version 3)
Quarter: 2017Q3

REPORT INFORMATION
  Report Type: Report from Study
  Country: US (occurrence: US)
  Receive Date: 20161118
  Receipt Date: 20170731
  Transmission Date: 20171127
  Serious: Yes (Hospitalization, Other)
  Sender: FDA-Public Use
  Company Number: US-PFIZER INC-2016528578

PATIENT
  Age: 51 Year
  Sex: Female

DRUGS (4)
  1. VISOELASTIC [Concomitant]
     Indication: CATARACT OPERATION
     Dosage: UNK
  2. VANCOMYCIN HCL [Suspect]
     Active Substance: VANCOMYCIN HYDROCHLORIDE
     Dosage: 1MG/0.1ML
     Route: 050
  3. VISOELASTIC [Concomitant]
     Dosage: UNK
  4. VANCOMYCIN HCL [Suspect]
     Active Substance: VANCOMYCIN HYDROCHLORIDE
     Indication: CATARACT OPERATION
     Dosage: 1MG/0.1ML
     Route: 050

REACTIONS (2)
  - Haemorrhagic vasculitis [Unknown]
  - Retinal vasculitis [Unknown]
